FAERS Safety Report 15281698 (Version 1)
Quarter: 2018Q4

REPORT INFORMATION
  Report Type: Report from Study
  Country: DE (occurrence: DE)
  Receive Date: 20180815
  Receipt Date: 20180815
  Transmission Date: 20190204
  Serious: Yes (Hospitalization)
  Sender: FDA-Public Use
  Company Number: PHHO2018DE008466

PATIENT
  Age: 75 Year
  Sex: Male
  Weight: 78 kg

DRUGS (8)
  1. RATIOPHARMEVA [Suspect]
     Active Substance: CYPROTERONE ACETATE\ETHINYL ESTRADIOL
     Indication: OEDEMA
     Dosage: 50 MG, QD
     Route: 065
     Dates: start: 20180417
  2. ASPIRIN. [Concomitant]
     Active Substance: ASPIRIN
     Indication: PERIPHERAL ARTERIAL OCCLUSIVE DISEASE
     Dosage: 100 MG, QD
     Route: 065
     Dates: start: 20160521
  3. LASIX [Suspect]
     Active Substance: FUROSEMIDE
     Indication: OEDEMA
     Dosage: 10 MG, QD
     Route: 065
     Dates: start: 20160921
  4. SPIRONOLACTONE. [Suspect]
     Active Substance: SPIRONOLACTONE
     Indication: OEDEMA
     Dosage: 50 MG, QD
     Route: 065
     Dates: start: 20180417
  5. BGJ398 [Suspect]
     Active Substance: INFIGRATINIB
     Indication: CHOLANGIOCARCINOMA
     Dosage: 50 MG, QD
     Route: 048
     Dates: start: 20171121, end: 20180716
  6. BISOPROLOL [Concomitant]
     Active Substance: BISOPROLOL
     Indication: HYPERTENSION
     Dosage: 5 MG, QD
     Route: 065
     Dates: start: 20160921
  7. FUROSEMIDE. [Suspect]
     Active Substance: FUROSEMIDE
     Indication: OEDEMA
     Dosage: 10 MG, QD
     Route: 065
     Dates: start: 20160921
  8. PANTOPRAZOLE [Concomitant]
     Active Substance: PANTOPRAZOLE
     Indication: GASTRITIS
     Dosage: 40 MG, BID
     Route: 065
     Dates: start: 20160921

REACTIONS (2)
  - Pleural effusion [Recovered/Resolved]
  - Acute kidney injury [Recovered/Resolved]

NARRATIVE: CASE EVENT DATE: 20180716
